FAERS Safety Report 7417635-4 (Version None)
Quarter: 2011Q2

REPORT INFORMATION
  Report Type: 
  Country: None (occurrence: None)
  Receive Date: 20110415
  Receipt Date: 20110405
  Transmission Date: 20111010
  Serious: Yes (Hospitalization)
  Sender: FDA-Public Use
  Company Number: PHHY2011US29584

PATIENT
  Sex: Male
  Weight: 78.6 kg

DRUGS (14)
  1. MAGNESIUM [Concomitant]
  2. TOPRAL [Concomitant]
  3. METOCLOPRAMIDE [Concomitant]
  4. AMIODARONE HCL [Concomitant]
     Dosage: UNK
  5. COLCHICINE [Concomitant]
     Dosage: UNK
  6. EXJADE [Suspect]
     Indication: IRON METABOLISM DISORDER
     Dosage: 1500 MG, QD
     Route: 048
     Dates: start: 20100210
  7. HYDREA [Concomitant]
  8. LASIX [Concomitant]
  9. FOLIC ACID [Concomitant]
     Dosage: UNK
  10. MUCINEX [Concomitant]
     Dosage: UNK
  11. ROBITUSSIN [Concomitant]
  12. COUMADIN [Concomitant]
     Dosage: UNK
  13. CALCITRIOL [Concomitant]
     Dosage: UNK
  14. ALLOPURINOL [Concomitant]

REACTIONS (2)
  - RENAL IMPAIRMENT [None]
  - HYPERMAGNESAEMIA [None]
